FAERS Safety Report 16748919 (Version 2)
Quarter: 2022Q1

REPORT INFORMATION
  Report Type: Spontaneous
  Country: PL (occurrence: PL)
  Receive Date: 20190828
  Receipt Date: 20220317
  Transmission Date: 20220424
  Serious: Yes (Other)
  Sender: FDA-Public Use
  Company Number: PL-AUROBINDO-AUR-APL-2019-056530

PATIENT
  Age: 86 Year
  Sex: Female

DRUGS (2)
  1. AMLODIPINE BESYLATE [Suspect]
     Active Substance: AMLODIPINE BESYLATE
     Indication: Product used for unknown indication
     Dosage: UNK UNK, DAILY
     Route: 065
  2. QUETIAPINE FUMARATE [Suspect]
     Active Substance: QUETIAPINE FUMARATE
     Indication: Product used for unknown indication
     Dosage: DOSE UNKNOWN; DURING DISCHARGE FROM HOSPITAL DOSE INCREASED ^1-2^
     Route: 065

REACTIONS (21)
  - Oedema peripheral [Unknown]
  - Seizure [Unknown]
  - Muscle spasms [Unknown]
  - Hyperaesthesia [Unknown]
  - Fear [Unknown]
  - Speech disorder [Unknown]
  - Syncope [Unknown]
  - Constipation [Unknown]
  - Somnolence [Unknown]
  - Disorientation [Unknown]
  - Pharyngeal oedema [Unknown]
  - Screaming [Unknown]
  - Hallucination [Unknown]
  - Circulatory collapse [Unknown]
  - Diarrhoea [Unknown]
  - Dizziness [Unknown]
  - Erythema [Unknown]
  - Eyelid oedema [Unknown]
  - Arthralgia [Unknown]
  - Face oedema [Unknown]
  - Dry mouth [Unknown]
